FAERS Safety Report 13152333 (Version 2)
Quarter: 2017Q1

REPORT INFORMATION
  Report Type: Report from Study
  Country: US (occurrence: US)
  Receive Date: 20170125
  Receipt Date: 20170207
  Transmission Date: 20170428
  Serious: Yes (Hospitalization)
  Sender: FDA-Public Use
  Company Number: US-GILEAD-2017-0254522

PATIENT
  Age: 10 Year
  Sex: Female
  Weight: 36.6 kg

DRUGS (2)
  1. AMBRISENTAN [Suspect]
     Active Substance: AMBRISENTAN
     Indication: PULMONARY ARTERIAL HYPERTENSION
     Dosage: 2.5 MG, UNK
     Route: 065
  2. TYVASO [Concomitant]
     Active Substance: TREPROSTINIL

REACTIONS (2)
  - Ear infection [Unknown]
  - Off label use [Unknown]
